FAERS Safety Report 9518142 (Version 1)
Quarter: 2013Q3

REPORT INFORMATION
  Report Type: Spontaneous
  Country: US (occurrence: None)
  Receive Date: 20130910
  Receipt Date: 20130910
  Transmission Date: 20140515
  Serious: Yes (Life-Threatening, Hospitalization)
  Sender: FDA-Public Use
  Company Number: None

PATIENT
  Age: 24 Year
  Sex: Female
  Weight: 123.83 kg

DRUGS (6)
  1. TRI-LINYAH [Suspect]
     Indication: MENORRHAGIA
     Route: 048
     Dates: start: 20130128, end: 20130813
  2. DULERA [Suspect]
     Dosage: 2 PUFFS
  3. PRO AIR [Suspect]
     Dosage: 2 PUFFS
  4. WARFARIN [Suspect]
     Dosage: ONE AND ONE HALF
  5. TYLENOL [Suspect]
  6. SINGULAR [Suspect]
     Dosage: 1 TABLET

REACTIONS (2)
  - Pulmonary haemorrhage [None]
  - Thrombosis [None]
